FAERS Safety Report 24778716 (Version 1)
Quarter: 2024Q4

REPORT INFORMATION
  Report Type: Spontaneous
  Country: US (occurrence: US)
  Receive Date: 20241226
  Receipt Date: 20241226
  Transmission Date: 20250114
  Serious: Yes (Other)
  Sender: JOHNSON AND JOHNSON
  Company Number: US-JNJFOC-20241243163

PATIENT
  Sex: Female

DRUGS (1)
  1. ELMIRON [Suspect]
     Active Substance: PENTOSAN POLYSULFATE SODIUM
     Indication: Cystitis interstitial
     Dosage: VARYING DOSES OF 100 AND 200 MG WITH FREQUENCIES OF ONCE DAILY AND TWICE DAILY
     Route: 048

REACTIONS (2)
  - Dry age-related macular degeneration [Unknown]
  - Off label use [Unknown]
